FAERS Safety Report 17462511 (Version 1)
Quarter: 2020Q1

REPORT INFORMATION
  Report Type: Spontaneous
  Country: US (occurrence: US)
  Receive Date: 20200226
  Receipt Date: 20200226
  Transmission Date: 20200409
  Serious: Yes (Death)
  Sender: FDA-Public Use
  Company Number: None

PATIENT
  Age: 64 Year
  Sex: Male
  Weight: 79.65 kg

DRUGS (2)
  1. HUMIRA [Suspect]
     Active Substance: ADALIMUMAB
     Indication: RHEUMATOID ARTHRITIS
     Dosage: ?          OTHER FREQUENCY:Q 14 DAYS;?
     Route: 058
     Dates: start: 20191120
  2. HUMIRA [Concomitant]
     Active Substance: ADALIMUMAB
     Dates: start: 20191120

REACTIONS (5)
  - Sepsis [None]
  - Pneumonia [None]
  - Heparin-induced thrombocytopenia [None]
  - Acute kidney injury [None]
  - Fatigue [None]

NARRATIVE: CASE EVENT DATE: 20191218
